FAERS Safety Report 18351560 (Version 1)
Quarter: 2020Q4

REPORT INFORMATION
  Report Type: Spontaneous
  Country: CA (occurrence: CA)
  Receive Date: 20201006
  Receipt Date: 20201006
  Transmission Date: 20210114
  Serious: Yes (Other)
  Sender: FDA-Public Use
  Company Number: CA-BAXTER HEALTHCARE-2092477

PATIENT

DRUGS (3)
  1. ARTISS [Suspect]
     Active Substance: FIBRINOGEN HUMAN\THROMBIN HUMAN
  2. ARTISS FIBRIN SEALANT [Suspect]
     Active Substance: FIBRINOGEN HUMAN\THROMBIN HUMAN
     Indication: SKIN GRAFT
  3. EASY SPRAY [Concomitant]

REACTIONS (1)
  - Skin graft failure [Unknown]
